FAERS Safety Report 13244255 (Version 1)
Quarter: 2017Q1

REPORT INFORMATION
  Report Type: Spontaneous
  Country: US (occurrence: US)
  Receive Date: 20170216
  Receipt Date: 20170216
  Transmission Date: 20170428
  Serious: No
  Sender: FDA-Public Use
  Company Number: US-RELYPSA-RLY2016004635

PATIENT
  Age: 57 Year
  Sex: Female

DRUGS (20)
  1. PHENTERMINE. [Concomitant]
     Active Substance: PHENTERMINE
  2. ZOFRAN [Concomitant]
     Active Substance: ONDANSETRON HYDROCHLORIDE
  3. PROZAC [Concomitant]
     Active Substance: FLUOXETINE HYDROCHLORIDE
  4. AMLODIPINE [Concomitant]
     Active Substance: AMLODIPINE BESYLATE
  5. OMEPRAZOLE. [Concomitant]
     Active Substance: OMEPRAZOLE
  6. ZANAFLEX [Concomitant]
     Active Substance: TIZANIDINE HYDROCHLORIDE
  7. AMARYL [Concomitant]
     Active Substance: GLIMEPIRIDE
  8. LISINOPRIL. [Concomitant]
     Active Substance: LISINOPRIL
  9. CARVEDILOL. [Concomitant]
     Active Substance: CARVEDILOL
  10. ISOSORBIDE. [Concomitant]
     Active Substance: ISOSORBIDE
     Dosage: UNK
     Dates: start: 201612
  11. VELTASSA [Suspect]
     Active Substance: PATIROMER
     Indication: HYPERKALAEMIA
     Dosage: 8.4 G, QD
     Route: 048
     Dates: start: 20161223
  12. TRAZODONE [Concomitant]
     Active Substance: TRAZODONE HYDROCHLORIDE
  13. LIPITOR [Concomitant]
     Active Substance: ATORVASTATIN CALCIUM
  14. LAMICTAL [Concomitant]
     Active Substance: LAMOTRIGINE
  15. HYDROCODONE BITARTRATE AND ACETAMINOPHEN [Concomitant]
     Active Substance: ACETAMINOPHEN\HYDROCODONE BITARTRATE
  16. CLONAZEPAM. [Concomitant]
     Active Substance: CLONAZEPAM
  17. ALPROZOLAM [Concomitant]
     Active Substance: ALPRAZOLAM
  18. KIONEX [Concomitant]
     Active Substance: SODIUM POLYSTYRENE SULFONATE
  19. VICTOZA [Concomitant]
     Active Substance: LIRAGLUTIDE
  20. CHLORTHALIDONE. [Concomitant]
     Active Substance: CHLORTHALIDONE

REACTIONS (2)
  - Abdominal pain [Not Recovered/Not Resolved]
  - Constipation [Not Recovered/Not Resolved]

NARRATIVE: CASE EVENT DATE: 20161224
